FAERS Safety Report 8198315-7 (Version None)
Quarter: 2012Q1

REPORT INFORMATION
  Report Type: 
  Country: None (occurrence: None)
  Receive Date: 20120309
  Receipt Date: 20120228
  Transmission Date: 20120608
  Serious: Yes (Hospitalization, Disabling, Other)
  Sender: FDA-Public Use
  Company Number: PHFR2011GB02553

PATIENT
  Sex: Female

DRUGS (1)
  1. CLOZARIL [Suspect]
     Indication: SCHIZOPHRENIA
     Route: 048
     Dates: start: 20100520

REACTIONS (5)
  - LOWER LIMB FRACTURE [None]
  - FALL [None]
  - ANKLE FRACTURE [None]
  - ORTHOSTATIC HYPOTENSION [None]
  - FEMORAL NECK FRACTURE [None]
